FAERS Safety Report 8275418-X (Version None)
Quarter: 2012Q2

REPORT INFORMATION
  Report Type: 
  Country: None (occurrence: None)
  Receive Date: 20120411
  Receipt Date: 20120330
  Transmission Date: 20120825
  Serious: Yes (Hospitalization)
  Sender: FDA-Public Use
  Company Number: FR-BRISTOL-MYERS SQUIBB COMPANY-16500969

PATIENT
  Age: 48 Year
  Sex: Male

DRUGS (11)
  1. CYTARABINE [Suspect]
     Indication: DIFFUSE LARGE B-CELL LYMPHOMA
     Route: 042
     Dates: end: 20100930
  2. IFOSFAMIDE [Suspect]
     Indication: DIFFUSE LARGE B-CELL LYMPHOMA
     Route: 042
     Dates: start: 20100531, end: 20100930
  3. MABTHERA [Suspect]
     Indication: DIFFUSE LARGE B-CELL LYMPHOMA
     Dosage: FROM 05FEB10 TO 27MAR10. THEN AGAIN FROM 31MAY10
     Route: 042
     Dates: start: 20100205
  4. PREDNISONE TAB [Suspect]
     Indication: DIFFUSE LARGE B-CELL LYMPHOMA
     Dates: start: 20100205, end: 20100327
  5. ENDOXAN INJ [Suspect]
     Indication: DIFFUSE LARGE B-CELL LYMPHOMA
     Route: 042
  6. DEXRAZOXANE HYDROCHLORIDE [Suspect]
     Indication: DIFFUSE LARGE B-CELL LYMPHOMA
     Dosage: CARDIOXANE 500 MG,POWDER FOR SOLUTION FOR INFUSION
     Route: 042
     Dates: start: 20100205, end: 20100327
  7. DOXORUBICIN HCL [Suspect]
     Indication: DIFFUSE LARGE B-CELL LYMPHOMA
     Route: 042
     Dates: start: 20100205, end: 20100327
  8. ETOPOPHOS PRESERVATIVE FREE [Suspect]
     Indication: DIFFUSE LARGE B-CELL LYMPHOMA
     Route: 042
     Dates: start: 20100531, end: 20100930
  9. METHOTREXATE [Suspect]
     Indication: DIFFUSE LARGE B-CELL LYMPHOMA
     Dosage: 05FEB10 TO 27MAR10 AND 29APR10 TO 14MAY10
     Route: 037
     Dates: start: 20100205, end: 20100514
  10. VINDESINE [Suspect]
     Indication: DIFFUSE LARGE B-CELL LYMPHOMA
     Dates: start: 20100205, end: 20100327
  11. BLEOMYCIN SULFATE [Suspect]
     Indication: DIFFUSE LARGE B-CELL LYMPHOMA
     Dosage: BLEOMYCINE BELLON 15 MG, POWDER FOR SOLUTION FOR INJECTION
     Route: 042
     Dates: start: 20100205, end: 20100323

REACTIONS (1)
  - ACUTE MYELOMONOCYTIC LEUKAEMIA [None]
